FAERS Safety Report 5231778-5 (Version None)
Quarter: 2007Q1

REPORT INFORMATION
  Report Type: 
  Country: None (occurrence: None)
  Receive Date: 20070206
  Receipt Date: 20070122
  Transmission Date: 20070707
  Serious: Yes (Other)
  Sender: FDA-Public Use
  Company Number: JP-PFIZER INC-2007008402

PATIENT
  Age: 60 Year
  Sex: Male

DRUGS (3)
  1. LIPITOR [Suspect]
     Dosage: DAILY DOSE:5MG
     Route: 048
  2. ALLOPURINOL SODIUM [Concomitant]
     Dosage: DAILY DOSE:100MG
     Route: 048
  3. ALLOPURINOL SODIUM [Concomitant]
     Dosage: DAILY DOSE:100MG
     Route: 048
     Dates: start: 20060818

REACTIONS (1)
  - RETINAL DETACHMENT [None]
